FAERS Safety Report 5375775-8 (Version None)
Quarter: 2007Q2

REPORT INFORMATION
  Report Type: 
  Country: None (occurrence: None)
  Receive Date: 20070628
  Receipt Date: 20070611
  Transmission Date: 20071010
  Serious: Yes (Other)
  Sender: FDA-Public Use
  Company Number: 163-21880-07051131

PATIENT
  Age: 61 Year
  Sex: Male

DRUGS (1)
  1. REVLIMID [Suspect]
     Indication: MULTIPLE MYELOMA
     Dosage: 25 MG, DAILY 21 ON 7 OFF, ORAL
     Route: 048
     Dates: start: 20070430

REACTIONS (2)
  - CONSTIPATION [None]
  - MUSCLE SPASMS [None]
